FAERS Safety Report 20704394 (Version 1)
Quarter: 2022Q2

REPORT INFORMATION
  Report Type: Spontaneous
  Country: US (occurrence: None)
  Receive Date: 20220412
  Receipt Date: 20220412
  Transmission Date: 20220721
  Serious: No
  Sender: FDA-Public Use
  Company Number: None

PATIENT
  Age: 79 Year
  Sex: Male

DRUGS (1)
  1. FORTEO [Suspect]
     Active Substance: TERIPARATIDE
     Indication: Osteoporosis
     Dosage: 20MCG DAILY ?
     Route: 058
     Dates: start: 20210722

REACTIONS (2)
  - Device defective [None]
  - Drug dose omission by device [None]

NARRATIVE: CASE EVENT DATE: 20220409
